FAERS Safety Report 7914447-X (Version None)
Quarter: 2011Q4

REPORT INFORMATION
  Report Type: 
  Country: None (occurrence: None)
  Receive Date: 20111115
  Receipt Date: 20111108
  Transmission Date: 20120403
  Serious: Yes (Hospitalization)
  Sender: FDA-Public Use
  Company Number: JP-SANOFI-AVENTIS-2011SA074285

PATIENT
  Age: 73 Year
  Sex: Male

DRUGS (1)
  1. ALLEGRA [Suspect]
     Route: 065

REACTIONS (1)
  - TOXIC SKIN ERUPTION [None]
